FAERS Safety Report 6842890-9 (Version None)
Quarter: 2010Q3

REPORT INFORMATION
  Report Type: 
  Country: None (occurrence: None)
  Receive Date: 20100714
  Receipt Date: 20070807
  Transmission Date: 20110219
  Serious: No
  Sender: FDA-Public Use
  Company Number: US-PFIZER INC-2007066960

PATIENT
  Sex: Female
  Weight: 68.2 kg

DRUGS (6)
  1. CHANTIX [Suspect]
     Indication: SMOKING CESSATION THERAPY
     Dates: start: 20070804
  2. TIAZAC [Concomitant]
  3. BENICAR [Concomitant]
  4. AVANDIA [Concomitant]
  5. ACETYLSALICYLIC ACID [Concomitant]
  6. VYTORIN [Concomitant]

REACTIONS (6)
  - ABDOMINAL PAIN UPPER [None]
  - DIARRHOEA [None]
  - DRUG WITHDRAWAL SYNDROME [None]
  - FLATULENCE [None]
  - NERVOUSNESS [None]
  - RESTLESSNESS [None]
